FAERS Safety Report 21008895 (Version 1)
Quarter: 2022Q2

REPORT INFORMATION
  Report Type: Spontaneous
  Country: US (occurrence: US)
  Receive Date: 20220627
  Receipt Date: 20220627
  Transmission Date: 20220721
  Serious: Yes (Other)
  Sender: FDA-Public Use
  Company Number: US-GILEAD-2022-0586869

PATIENT
  Sex: Female

DRUGS (4)
  1. EPCLUSA [Suspect]
     Active Substance: SOFOSBUVIR\VELPATASVIR
     Indication: Chronic hepatitis C
     Dosage: 1 DOSAGE FORM, QD
     Route: 048
  2. LISINOPRIL [Concomitant]
     Active Substance: LISINOPRIL
  3. AMOXICILLIN [Concomitant]
     Active Substance: AMOXICILLIN
  4. VALIUM [Concomitant]
     Active Substance: DIAZEPAM

REACTIONS (4)
  - Renal impairment [Unknown]
  - Dyspepsia [Unknown]
  - Weight decreased [Unknown]
  - Asthenia [Unknown]
